FAERS Safety Report 15541665 (Version 1)
Quarter: 2018Q4

REPORT INFORMATION
  Report Type: Spontaneous
  Country: US (occurrence: US)
  Receive Date: 20181023
  Receipt Date: 20181023
  Transmission Date: 20190205
  Serious: Yes (Hospitalization)
  Sender: FDA-Public Use
  Company Number: US-JNJFOC-20181027916

PATIENT
  Age: 36 Year
  Sex: Male

DRUGS (2)
  1. INVOKAMET [Suspect]
     Active Substance: CANAGLIFLOZIN\METFORMIN HYDROCHLORIDE
     Indication: TYPE 2 DIABETES MELLITUS
     Route: 048
     Dates: start: 20141118
  2. INVOKANA [Suspect]
     Active Substance: CANAGLIFLOZIN
     Indication: TYPE 2 DIABETES MELLITUS
     Route: 048
     Dates: start: 20140905

REACTIONS (5)
  - Arthritis bacterial [Unknown]
  - Diabetic ketoacidosis [Recovered/Resolved]
  - Metatarsal excision [Unknown]
  - Cellulitis [Unknown]
  - Osteomyelitis [Unknown]

NARRATIVE: CASE EVENT DATE: 201411
